FAERS Safety Report 7116818-0 (Version None)
Quarter: 2010Q4

REPORT INFORMATION
  Report Type: 
  Country: None (occurrence: None)
  Receive Date: 20101122
  Receipt Date: 20101118
  Transmission Date: 20110411
  Serious: Yes (Other)
  Sender: FDA-Public Use
  Company Number: AU-ABBOTT-10P-008-0686170-00

PATIENT
  Sex: Male

DRUGS (3)
  1. LUCRIN DEPOT [Suspect]
     Indication: PRODUCT USED FOR UNKNOWN INDICATION
     Dates: start: 20100601
  2. ZESTRIL [Concomitant]
     Indication: BLOOD PRESSURE
  3. PHYSIOTENS [Concomitant]
     Indication: BLOOD PRESSURE

REACTIONS (2)
  - BLOOD PRESSURE INCREASED [None]
  - MICTURITION URGENCY [None]
